FAERS Safety Report 9714576 (Version 1)
Quarter: 2013Q4

REPORT INFORMATION
  Report Type: Spontaneous
  Country: US (occurrence: US)
  Receive Date: 20131126
  Receipt Date: 20131126
  Transmission Date: 20140711
  Serious: No
  Sender: FDA-Public Use
  Company Number: US-009507513-1311USA011370

PATIENT
  Sex: Female
  Weight: 58.96 kg

DRUGS (3)
  1. CLARITIN-D-12 [Suspect]
     Indication: HYPERSENSITIVITY
     Dosage: UNK UNK, UNKNOWN
     Route: 048
  2. CLARITIN-D-12 [Suspect]
     Indication: LACRIMATION INCREASED
  3. CLARITIN-D-12 [Suspect]
     Indication: SNEEZING

REACTIONS (1)
  - Insomnia [Unknown]
